FAERS Safety Report 8943567 (Version 2)
Quarter: 2012Q4

REPORT INFORMATION
  Report Type: 
  Country: FR (occurrence: FR)
  Receive Date: 20121203
  Receipt Date: 20121217
  Transmission Date: 20130627
  Serious: Yes (Hospitalization)
  Sender: FDA-Public Use
  Company Number: FR-B.I. PHARMACEUTICALS,INC./RIDGEFIELD-2012-FF-01781FF

PATIENT
  Age: 64 None
  Sex: Male
  Weight: 70 kg

DRUGS (9)
  1. PRADAXA [Suspect]
     Indication: ATRIAL FIBRILLATION
     Dosage: 300 mg
     Route: 048
     Dates: start: 201211, end: 201211
  2. PRADAXA [Suspect]
     Dosage: 220 mg
     Route: 048
     Dates: start: 201211
  3. TAHOR [Concomitant]
     Indication: DYSLIPIDAEMIA
     Dosage: 40 mg
     Route: 048
  4. CARDENSIEL [Concomitant]
     Indication: CARDIAC FAILURE
     Dosage: 2.5 mg
     Route: 048
  5. LASILIX [Concomitant]
     Indication: CARDIAC FAILURE
     Dosage: 500 mg
     Route: 048
  6. TARDYFERON [Concomitant]
     Indication: ANAEMIA
     Route: 048
  7. REVATIO [Concomitant]
     Indication: PULMONARY ARTERIAL HYPERTENSION
     Dosage: 60 mg
     Route: 048
  8. LEVEMIR [Concomitant]
     Indication: DIABETES MELLITUS
  9. NOVORAPID [Concomitant]
     Indication: DIABETES MELLITUS

REACTIONS (4)
  - Cardiac failure [Recovered/Resolved]
  - Epistaxis [Recovered/Resolved]
  - Red blood cell count decreased [Recovered/Resolved]
  - International normalised ratio abnormal [Recovered/Resolved]
